FAERS Safety Report 8133037-X (Version None)
Quarter: 2012Q1

REPORT INFORMATION
  Report Type: 
  Country: None (occurrence: None)
  Receive Date: 20120213
  Receipt Date: 20120203
  Transmission Date: 20120608
  Serious: Yes (Hospitalization, Other)
  Sender: FDA-Public Use
  Company Number: PHHY2011DE106358

PATIENT
  Sex: Female
  Weight: 81 kg

DRUGS (21)
  1. ALPHA RECEPTOR BLOCKER [Concomitant]
     Dates: start: 20100430
  2. JANUMET [Concomitant]
     Indication: DIABETES MELLITUS
     Dosage: 1 DF, QD
     Route: 048
     Dates: start: 20110201
  3. XIPAMIDE [Concomitant]
     Indication: OEDEMA
     Dosage: 40 MG/DAY
     Route: 048
  4. DILTIAZEM HCL [Concomitant]
     Indication: HYPERTENSION
     Dosage: 90 MG/DAY
     Route: 048
     Dates: start: 20090101, end: 20100225
  5. ESCITALOPRAM [Concomitant]
     Indication: DEPRESSION
     Dosage: 10 MG/DAY
     Route: 048
     Dates: start: 20110601, end: 20110901
  6. RASILEZ [Suspect]
     Indication: HYPERTENSION
     Dosage: 150 MG/D
     Route: 048
     Dates: start: 20081114, end: 20090409
  7. VALDOXAN [Suspect]
     Indication: DEPRESSION
     Dosage: 25 MG/DAY
     Route: 048
     Dates: start: 20090101, end: 20100225
  8. CALCIUM CHANNEL BLOCKERS [Concomitant]
     Dates: start: 20090409
  9. ACE INHIBITOR NOS [Concomitant]
     Dates: start: 20100430
  10. DELIX PLUS [Concomitant]
     Indication: HYPERTENSION
     Dosage: 1 DF, QD
     Route: 048
     Dates: start: 20080101, end: 20100225
  11. INSUMAN COMB [Concomitant]
     Indication: DIABETES MELLITUS
     Dosage: 40 IU/DAY
     Route: 058
     Dates: start: 20110601
  12. RASILEZ [Suspect]
     Dosage: 150 MG/D
     Route: 048
     Dates: start: 20111102
  13. AMARYL [Concomitant]
     Indication: DIABETES MELLITUS
     Dosage: 1.5 MG/DAY
     Route: 048
     Dates: start: 20080101
  14. ANTIDEPRESSANTS [Concomitant]
     Indication: DEPRESSION
  15. INSULIN HUMAN [Concomitant]
     Indication: DIABETES MELLITUS
     Dosage: 38 IU/DAY
     Route: 058
     Dates: start: 20110601
  16. HYDROCHLOROTHIAZIDE [Concomitant]
     Indication: HYPERTENSION
     Dosage: 25 MG/ DAY
     Route: 048
     Dates: start: 20090409
  17. GLIMEPIRIDE [Concomitant]
     Indication: DIABETES MELLITUS
     Dosage: 3 MG/DAY
     Route: 048
     Dates: start: 20030801, end: 20110901
  18. AMLODIPINE [Concomitant]
     Indication: HYPERTENSION
     Dates: start: 20090401
  19. RAMIPRIL [Concomitant]
     Indication: HYPERTENSION
     Dosage: 5 MG/DAY
     Route: 048
     Dates: start: 20080901
  20. CLIMOPAX [Concomitant]
     Indication: MENOPAUSE
     Dosage: 1 DF, QD
     Route: 048
     Dates: start: 20030827, end: 20110901
  21. MOXONIDINE [Concomitant]
     Indication: HYPERTENSION
     Dosage: 0.4 MG/DAY
     Route: 048
     Dates: start: 20100401

REACTIONS (4)
  - DEPRESSION [None]
  - CORONARY ARTERY DISEASE [None]
  - PSYCHIATRIC SYMPTOM [None]
  - CHRONIC OBSTRUCTIVE PULMONARY DISEASE [None]
